FAERS Safety Report 7382617-8 (Version None)
Quarter: 2011Q1

REPORT INFORMATION
  Report Type: 
  Country: None (occurrence: None)
  Receive Date: 20110329
  Receipt Date: 20110315
  Transmission Date: 20110831
  Serious: Yes (Life-Threatening)
  Sender: FDA-Public Use
  Company Number: GB-MYLANLABS-2011S1005600

PATIENT
  Age: 49 Year
  Sex: Female

DRUGS (5)
  1. AMITRIPTYLINE [Suspect]
     Indication: OVERDOSE
     Route: 048
  2. DIAZEPAM [Suspect]
     Indication: OVERDOSE
     Route: 048
  3. PETHIDINE [Suspect]
     Indication: OVERDOSE
     Route: 048
  4. NIZATIDINE [Suspect]
     Indication: OVERDOSE
     Route: 048
  5. IBUPROFEN [Suspect]
     Indication: OVERDOSE
     Route: 048

REACTIONS (5)
  - LOSS OF CONSCIOUSNESS [None]
  - HYPOVENTILATION [None]
  - ACIDOSIS [None]
  - HYPOTENSION [None]
  - MULTIPLE DRUG OVERDOSE [None]
